FAERS Safety Report 13960521 (Version 1)
Quarter: 2017Q3

REPORT INFORMATION
  Report Type: Spontaneous
  Country: US (occurrence: US)
  Receive Date: 20170912
  Receipt Date: 20170912
  Transmission Date: 20171128
  Serious: Yes (Hospitalization)
  Sender: FDA-Public Use
  Company Number: US-FRESENIUS MEDICAL CARE RENAL THERAPIES GROUP-FMC-1709-001075

PATIENT
  Age: 59 Year
  Sex: Male
  Weight: 90.8 kg

DRUGS (9)
  1. DELFLEX WITH DEXTROSE 1.5% LOW MAGNESIUM LOW CALCIUM [Suspect]
     Active Substance: CALCIUM CHLORIDE\DEXTROSE\MAGNESIUM CHLORIDE\SODIUM CHLORIDE\SODIUM LACTATE
     Indication: END STAGE RENAL DISEASE
     Route: 033
  2. ASPRIN [Concomitant]
     Active Substance: ASPIRIN
  3. INSULIN ASPART [Concomitant]
     Active Substance: INSULIN ASPART
  4. INSULIN GLARGINE [Concomitant]
     Active Substance: INSULIN GLARGINE
  5. AMLODIPINE [Concomitant]
     Active Substance: AMLODIPINE BESYLATE
  6. POLYETHYLENE GLYCOL [Concomitant]
     Active Substance: POLYETHYLENE GLYCOLS
  7. LISINOPRIL. [Concomitant]
     Active Substance: LISINOPRIL
  8. ROPINIROLE. [Concomitant]
     Active Substance: ROPINIROLE
  9. ATORVASTATIN [Concomitant]
     Active Substance: ATORVASTATIN

REACTIONS (3)
  - Pleural effusion [Recovering/Resolving]
  - Device occlusion [Unknown]
  - Pleuroperitoneal communication [Recovering/Resolving]

NARRATIVE: CASE EVENT DATE: 20170807
